FAERS Safety Report 6700471-1 (Version None)
Quarter: 2010Q2

REPORT INFORMATION
  Report Type: 
  Country: None (occurrence: None)
  Receive Date: 20100428
  Receipt Date: 20100420
  Transmission Date: 20101027
  Serious: Yes (Life-Threatening, Hospitalization)
  Sender: FDA-Public Use
  Company Number: GXKR2010MA03797

PATIENT
  Age: 76 Year
  Sex: Female

DRUGS (9)
  1. PARACETAMOL (NGX) [Suspect]
     Indication: ARTHRALGIA
     Route: 065
  2. THIOCOLCHICOSIDE (NGX) [Suspect]
     Indication: ARTHRALGIA
  3. INDAPAMIDE [Concomitant]
     Indication: HYPERTENSION
  4. OMEPRAZOLE [Concomitant]
     Indication: GASTRITIS
     Dosage: 20 MG/DAY
     Route: 065
  5. OMEPRAZOLE [Concomitant]
     Dosage: 40 MG, QD
  6. ACETYLSALICYLIC ACID [Concomitant]
     Dosage: 100 MG/DAY
     Route: 065
  7. CELECOXIB [Suspect]
     Indication: ARTHRALGIA
  8. ERGOCALCIFEROL [Concomitant]
  9. CALCIUM [Concomitant]

REACTIONS (8)
  - MUCOSAL ULCERATION [None]
  - OLIGURIA [None]
  - PYREXIA [None]
  - RASH [None]
  - RENAL IMPAIRMENT [None]
  - STAPHYLOCOCCAL SEPSIS [None]
  - TACHYPNOEA [None]
  - TOXIC EPIDERMAL NECROLYSIS [None]
